FAERS Safety Report 12925459 (Version 1)
Quarter: 2016Q4

REPORT INFORMATION
  Report Type: Spontaneous
  Country: US (occurrence: US)
  Receive Date: 20161108
  Receipt Date: 20161108
  Transmission Date: 20170207
  Serious: No
  Sender: FDA-Public Use
  Company Number: US-SA-2016SA156800

PATIENT
  Sex: Male

DRUGS (4)
  1. ALIROCUMAB PREFILLED PEN [Concomitant]
     Active Substance: ALIROCUMAB
     Route: 065
  2. PRALUENT [Suspect]
     Active Substance: ALIROCUMAB
     Dosage: DOSE- INJECTED ONLY HALF THE CONTENTS OF THE SYRINGE
     Route: 065
  3. PRALUENT [Suspect]
     Active Substance: ALIROCUMAB
     Route: 065
  4. ALIROCUMAB PREFILLED PEN [Concomitant]
     Active Substance: ALIROCUMAB
     Route: 065

REACTIONS (2)
  - Nausea [Unknown]
  - Intentional product use issue [Unknown]
